FAERS Safety Report 20530365 (Version 1)
Quarter: 2022Q1

REPORT INFORMATION
  Report Type: Spontaneous
  Country: US (occurrence: US)
  Receive Date: 20220301
  Receipt Date: 20220301
  Transmission Date: 20220423
  Serious: Yes (Other)
  Sender: FDA-Public Use
  Company Number: US-SA-SAC20220225000048

PATIENT
  Age: 31 Year
  Sex: Female

DRUGS (1)
  1. ZANTAC [Suspect]
     Active Substance: RANITIDINE HYDROCHLORIDE
     Indication: Gastric ulcer
     Dosage: UNKNOWN AT THIS TIME FREQUENCY =OTHER
     Dates: start: 198301, end: 201601

REACTIONS (3)
  - Oesophageal carcinoma [Recovering/Resolving]
  - Throat cancer [Recovering/Resolving]
  - Uterine cancer [Unknown]

NARRATIVE: CASE EVENT DATE: 19910101
